FAERS Safety Report 17190971 (Version 1)
Quarter: 2019Q4

REPORT INFORMATION
  Report Type: Spontaneous
  Country: US (occurrence: US)
  Receive Date: 20191220
  Receipt Date: 20191220
  Transmission Date: 20200122
  Serious: Yes (Hospitalization)
  Sender: FDA-Public Use
  Company Number: None

PATIENT
  Age: 56 Year
  Sex: Female
  Weight: 61.2 kg

DRUGS (2)
  1. CETUXIMAB. [Suspect]
     Active Substance: CETUXIMAB
     Indication: SQUAMOUS CELL CARCINOMA
     Dosage: ?          OTHER FREQUENCY:WEEKLY;?
     Route: 041
     Dates: start: 20190508, end: 20190731
  2. DURVALUMAB. [Suspect]
     Active Substance: DURVALUMAB
     Indication: SQUAMOUS CELL CARCINOMA
     Dosage: ?          OTHER FREQUENCY:EVERY 4 WEEKS;?
     Route: 041
     Dates: start: 20190515, end: 20190515

REACTIONS (8)
  - Pneumonia aspiration [None]
  - Pyrexia [None]
  - Purpura [None]
  - Device leakage [None]
  - Respiratory failure [None]
  - Pericardial effusion [None]
  - Blindness [None]
  - Pleural effusion [None]

NARRATIVE: CASE EVENT DATE: 20190523
